FAERS Safety Report 26155304 (Version 1)
Quarter: 2025Q4

REPORT INFORMATION
  Report Type: Spontaneous
  Country: US (occurrence: US)
  Receive Date: 20251215
  Receipt Date: 20251215
  Transmission Date: 20260118
  Serious: Yes (Other)
  Sender: ALVOGEN
  Company Number: US-ALVOGEN-2025096401

PATIENT
  Sex: Female

DRUGS (2)
  1. FENTANYL [Suspect]
     Active Substance: FENTANYL
     Indication: Spinal pain
     Dosage: 10 YEARS AGO ?25 TO 100MCG
     Route: 062
  2. FENTANYL [Suspect]
     Active Substance: FENTANYL
     Indication: Spinal pain
     Dosage: 25 TO 100MCG
     Route: 062

REACTIONS (23)
  - Loss of consciousness [Unknown]
  - Illness [Unknown]
  - Eye irritation [Unknown]
  - Feeling abnormal [Unknown]
  - Inadequate analgesia [Unknown]
  - Malabsorption from application site [Unknown]
  - Nasal congestion [Unknown]
  - Sedation [Unknown]
  - Rhinorrhoea [Unknown]
  - Application site erosion [Unknown]
  - Dermatitis contact [Unknown]
  - Insomnia [Unknown]
  - Anxiety [Recovering/Resolving]
  - Dizziness [Recovered/Resolved]
  - Nausea [Recovered/Resolved]
  - Vomiting [Recovered/Resolved]
  - Constipation [Recovering/Resolving]
  - Somnolence [Unknown]
  - Allergic reaction to excipient [Unknown]
  - Drug withdrawal syndrome [Not Recovered/Not Resolved]
  - Drug effect less than expected [Unknown]
  - Product dispensing error [Unknown]
  - Product substitution issue [Unknown]
